FAERS Safety Report 13026153 (Version 1)
Quarter: 2016Q4

REPORT INFORMATION
  Report Type: Spontaneous
  Country: US (occurrence: US)
  Receive Date: 20161214
  Receipt Date: 20161214
  Transmission Date: 20170207
  Serious: Yes (Other)
  Sender: FDA-Public Use
  Company Number: None

PATIENT
  Age: 54 Year
  Sex: Female

DRUGS (2)
  1. SHOWER TO SHOWER TALCUM PRODUCT [Suspect]
     Active Substance: TALC
     Indication: POOR PERSONAL HYGIENE
     Route: 061
     Dates: start: 1970, end: 2014
  2. JOHNSONS BABY POWDER [Suspect]
     Active Substance: TALC
     Indication: POOR PERSONAL HYGIENE
     Route: 061
     Dates: start: 1970, end: 2014

REACTIONS (1)
  - Ovarian cancer [None]

NARRATIVE: CASE EVENT DATE: 20110511
